FAERS Safety Report 21141183 (Version 1)
Quarter: 2022Q3

REPORT INFORMATION
  Report Type: Spontaneous
  Country: IT (occurrence: IT)
  Receive Date: 20220728
  Receipt Date: 20220728
  Transmission Date: 20221026
  Serious: Yes (Other)
  Sender: FDA-Public Use
  Company Number: None

PATIENT
  Age: 72 Year
  Sex: Female
  Weight: 70 kg

DRUGS (3)
  1. INFLIXIMAB [Suspect]
     Active Substance: INFLIXIMAB
     Indication: Product used for unknown indication
     Dosage: 5 MG/KG; 350 MG IN 250 ML; ADMINISTERED 100 ML EQUAL TO 140 MG OF INFLIXIMAB (80 ML / H FOR 30 MINUT
     Route: 041
     Dates: start: 20220707, end: 20220707
  2. CETIRIZIN ZENTIVA [Concomitant]
     Indication: Product used for unknown indication
     Dosage: 1 TABLET OF 10MG, APPROXIMATELY 20-30 MINUTES BEFORE INFLIXIMAB ADMINISTRATION
     Route: 048
     Dates: start: 20220707, end: 20220707
  3. PREDNISONE [Concomitant]
     Active Substance: PREDNISONE
     Indication: Premedication
     Dosage: 1 TABLET OF 25 MG, APPROXIMATELY 20-30 MINUTES BEFORE INFLIXIMAB ADMINISTRATION
     Route: 048
     Dates: start: 20220707, end: 20220707

REACTIONS (6)
  - Musculoskeletal pain [Recovered/Resolved]
  - Chills [Recovered/Resolved]
  - Headache [Recovered/Resolved]
  - Pyrexia [Recovered/Resolved]
  - Back pain [Recovered/Resolved]
  - Blood pressure increased [Recovered/Resolved]

NARRATIVE: CASE EVENT DATE: 20220707
